FAERS Safety Report 8082013-4 (Version None)
Quarter: 2012Q1

REPORT INFORMATION
  Report Type: 
  Country: None (occurrence: None)
  Receive Date: 20120130
  Receipt Date: 20120120
  Transmission Date: 20120608
  Serious: Yes (Other)
  Sender: FDA-Public Use
  Company Number: PHHY2012CZ005868

PATIENT
  Age: 23 Year
  Sex: Male

DRUGS (4)
  1. LEVOMEPROMAZINE [Concomitant]
     Indication: SCHIZOPHRENIFORM DISORDER
  2. RISPERIDONE [Suspect]
     Indication: SCHIZOPHRENIFORM DISORDER
     Dosage: 4 - 6 MG, DAILY
  3. ZUCLOPENTHIXOL [Suspect]
     Dosage: 100 MG, UNK
  4. PROMETHAZINE [Concomitant]
     Indication: SCHIZOPHRENIFORM DISORDER

REACTIONS (8)
  - DELUSION [None]
  - DYSTONIA [None]
  - ANXIETY [None]
  - HYPOMANIA [None]
  - HYPOKINESIA [None]
  - TREMOR [None]
  - DRUG WITHDRAWAL SYNDROME [None]
  - EXTRAPYRAMIDAL DISORDER [None]
